FAERS Safety Report 22636966 (Version 1)
Quarter: 2023Q2

REPORT INFORMATION
  Report Type: Report from Study
  Country: CA (occurrence: CA)
  Receive Date: 20230626
  Receipt Date: 20230626
  Transmission Date: 20230721
  Serious: Yes (Hospitalization)
  Sender: FDA-Public Use
  Company Number: CA-ABBVIE-5303716

PATIENT
  Age: 53 Year
  Sex: Male

DRUGS (1)
  1. RINVOQ [Suspect]
     Active Substance: UPADACITINIB
     Indication: Product used for unknown indication
     Route: 048
     Dates: start: 20210625

REACTIONS (15)
  - Viral infection [Unknown]
  - Blood cholesterol abnormal [Unknown]
  - Malaise [Unknown]
  - Gingival swelling [Unknown]
  - Mobility decreased [Unknown]
  - Asthenia [Unknown]
  - Tooth restoration [Unknown]
  - Infectious mononucleosis [Unknown]
  - Dizziness [Unknown]
  - Toothache [Not Recovered/Not Resolved]
  - Ear pain [Unknown]
  - Dyspepsia [Unknown]
  - Psoriasis [Unknown]
  - Acne [Unknown]
  - Wound haemorrhage [Unknown]

NARRATIVE: CASE EVENT DATE: 20221101
